FAERS Safety Report 14030423 (Version 1)
Quarter: 2017Q4

REPORT INFORMATION
  Report Type: Spontaneous
  Country: FR (occurrence: FR)
  Receive Date: 20171002
  Receipt Date: 20171002
  Transmission Date: 20180321
  Serious: Yes (Hospitalization)
  Sender: FDA-Public Use
  Company Number: PHHY2017FR141945

PATIENT
  Age: 65 Year
  Sex: Female

DRUGS (4)
  1. MIOREL (THIOCOLCHICOSIDE) [Concomitant]
     Active Substance: THIOCOLCHICOSIDE
     Indication: BACK PAIN
     Route: 065
  2. OMEPRAZOLE. [Concomitant]
     Active Substance: OMEPRAZOLE
     Indication: BACK PAIN
     Route: 065
  3. LAMALINE [Concomitant]
     Active Substance: ACETAMINOPHEN\CAFFEINE\OPIUM
     Indication: BACK PAIN
     Route: 065
  4. VOLTARENE [Suspect]
     Active Substance: DICLOFENAC SODIUM
     Indication: BACK PAIN
     Dosage: 75 MG, 6 TABLETS IN TOTAL
     Route: 048
     Dates: start: 20170523

REACTIONS (1)
  - Infection [Recovered/Resolved]

NARRATIVE: CASE EVENT DATE: 20170526
